FAERS Safety Report 18267751 (Version 1)
Quarter: 2020Q3

REPORT INFORMATION
  Report Type: Spontaneous
  Country: JP (occurrence: JP)
  Receive Date: 20200915
  Receipt Date: 20200915
  Transmission Date: 20201103
  Serious: Yes (Hospitalization, Other)
  Sender: FDA-Public Use
  Company Number: JP-PFIZER INC-2020354020

PATIENT
  Age: 72 Year
  Sex: Female

DRUGS (6)
  1. MUCOSTA [Concomitant]
     Active Substance: REBAMIPIDE
     Dosage: UNK
  2. TRAMCET [Concomitant]
     Active Substance: ACETAMINOPHEN\TRAMADOL
     Dosage: UNK
  3. EDIROL [Concomitant]
     Active Substance: ELDECALCITOL
     Dosage: UNK
  4. AZULFIDINE EN?TABS [Suspect]
     Active Substance: SULFASALAZINE
     Indication: RHEUMATOID ARTHRITIS
     Dosage: 500 MG, 2X/DAY
     Route: 048
     Dates: start: 20200803, end: 20200828
  5. PRIMPERAN [Concomitant]
     Active Substance: METOCLOPRAMIDE HYDROCHLORIDE
     Dosage: UNK
  6. EVISTA [Concomitant]
     Active Substance: RALOXIFENE HYDROCHLORIDE
     Dosage: UNK

REACTIONS (4)
  - Leukopenia [Not Recovered/Not Resolved]
  - Erythema [Not Recovered/Not Resolved]
  - Neutropenia [Not Recovered/Not Resolved]
  - Pyrexia [Not Recovered/Not Resolved]

NARRATIVE: CASE EVENT DATE: 20200828
